FAERS Safety Report 19210637 (Version 3)
Quarter: 2021Q4

REPORT INFORMATION
  Report Type: Spontaneous
  Country: US (occurrence: US)
  Receive Date: 20210504
  Receipt Date: 20211101
  Transmission Date: 20220303
  Serious: Yes (Life-Threatening, Hospitalization, Other)
  Sender: FDA-Public Use
  Company Number: US-SANOFI-00578539

PATIENT
  Age: 15 Year
  Sex: Male
  Weight: 80 kg

DRUGS (26)
  1. ALPROLIX [Suspect]
     Active Substance: EFTRENONACOG ALFA
     Indication: Factor IX deficiency
     Dosage: 40 IU/KG
     Route: 042
     Dates: start: 20210304, end: 20210314
  2. ALPROLIX [Suspect]
     Active Substance: EFTRENONACOG ALFA
     Indication: Factor IX deficiency
     Dosage: 40 IU/KG
     Route: 042
     Dates: start: 20210304, end: 20210314
  3. ALPROLIX [Suspect]
     Active Substance: EFTRENONACOG ALFA
     Indication: Prophylaxis
     Dosage: UNK, PRN
     Route: 042
     Dates: start: 2014
  4. ALPROLIX [Suspect]
     Active Substance: EFTRENONACOG ALFA
     Indication: Prophylaxis
     Dosage: UNK, PRN
     Route: 042
     Dates: start: 2014
  5. ALPROLIX [Suspect]
     Active Substance: EFTRENONACOG ALFA
     Indication: Traumatic haemorrhage
     Dosage: 80 IU/KG, QW (RECEIVED TOTAL 222 DOSES)
     Route: 042
     Dates: start: 201602, end: 202103
  6. ALPROLIX [Suspect]
     Active Substance: EFTRENONACOG ALFA
     Indication: Traumatic haemorrhage
     Dosage: 80 IU/KG, QW (RECEIVED TOTAL 222 DOSES)
     Route: 042
     Dates: start: 201602, end: 202103
  7. ALPROLIX [Suspect]
     Active Substance: EFTRENONACOG ALFA
     Dosage: 50 IU/KG
     Route: 040
     Dates: start: 20210307
  8. ALPROLIX [Suspect]
     Active Substance: EFTRENONACOG ALFA
     Dosage: 50 IU/KG
     Route: 040
     Dates: start: 20210307
  9. ALPROLIX [Suspect]
     Active Substance: EFTRENONACOG ALFA
     Dosage: 44 IU
     Dates: start: 20210313
  10. ALPROLIX [Suspect]
     Active Substance: EFTRENONACOG ALFA
     Dosage: 44 IU
     Dates: start: 20210313
  11. ALPROLIX [Suspect]
     Active Substance: EFTRENONACOG ALFA
     Dosage: 44 IU
     Dates: start: 20210314
  12. ALPROLIX [Suspect]
     Active Substance: EFTRENONACOG ALFA
     Dosage: 44 IU
     Dates: start: 20210314
  13. BENEFIX [Suspect]
     Active Substance: COAGULATION FACTOR IX RECOMBINANT HUMAN\ISOPROPYL ALCOHOL
     Dosage: UNK UNK, PRN
     Dates: end: 2014
  14. BENEFIX [Suspect]
     Active Substance: COAGULATION FACTOR IX RECOMBINANT HUMAN\ISOPROPYL ALCOHOL
     Dosage: UNK
     Dates: start: 20210314, end: 20210314
  15. NOVOSEVEN [Concomitant]
     Active Substance: COAGULATION FACTOR VIIA RECOMBINANT HUMAN
     Indication: Prophylaxis
     Dosage: 90 UG/KG
     Dates: start: 20210315
  16. ALPHANINE [FACTOR IX] [Concomitant]
     Dosage: 100 IU FOLLOWED BY 30 IU/KG
     Dates: start: 20210316, end: 20210316
  17. ALPHANINE [FACTOR IX] [Concomitant]
     Dosage: TEST DOSE OF 100 TOTAL IU FOLLOWED BY APPROX. 50 IU/KG OVER AN HOUR
     Dates: start: 20210318, end: 20210318
  18. ALPHANINE [FACTOR IX] [Concomitant]
     Dosage: UNK
     Dates: start: 20210322, end: 20210322
  19. TRANEXAMIC ACID [Concomitant]
     Active Substance: TRANEXAMIC ACID
     Indication: Factor IX deficiency
     Dosage: 1300 MG, TID
     Route: 048
     Dates: start: 20210304
  20. TRANEXAMIC ACID [Concomitant]
     Active Substance: TRANEXAMIC ACID
     Dosage: 10 MG/KG, 1X
     Route: 042
     Dates: start: 20210309, end: 20210309
  21. TRANEXAMIC ACID [Concomitant]
     Active Substance: TRANEXAMIC ACID
     Dosage: UNK UNK, Q8H
     Route: 042
     Dates: start: 20210309
  22. HUMATE-P [Concomitant]
     Active Substance: HUMAN COAGULATION FACTOR VIII/VON WILLEBRAND FACTOR COMPLEX
     Indication: Von Willebrand^s disease
     Dosage: VARYING DOSE
     Route: 042
     Dates: start: 20210304, end: 20210311
  23. HUMATE-P [Concomitant]
     Active Substance: HUMAN COAGULATION FACTOR VIII/VON WILLEBRAND FACTOR COMPLEX
     Dosage: UNK, PRN (RECEIVED TOTAL 51 DOSES)
     Route: 042
     Dates: start: 201602, end: 202103
  24. HUMATE-P [Concomitant]
     Active Substance: HUMAN COAGULATION FACTOR VIII/VON WILLEBRAND FACTOR COMPLEX
     Dosage: 40 IU/KG, 1X
     Route: 042
     Dates: start: 20210318
  25. HUMATE-P [Concomitant]
     Active Substance: HUMAN COAGULATION FACTOR VIII/VON WILLEBRAND FACTOR COMPLEX
     Dosage: UNK, 1X
     Route: 042
     Dates: start: 20210322, end: 20210322
  26. HEMOSTATIC [Concomitant]

REACTIONS (11)
  - Drug hypersensitivity [Recovered/Resolved]
  - Angioedema [Recovered/Resolved]
  - Pharyngeal swelling [Recovered/Resolved]
  - Swollen tongue [Recovered/Resolved]
  - Palatal oedema [Recovered/Resolved]
  - Dysphagia [Recovered/Resolved]
  - Stridor [Recovered/Resolved]
  - Pruritus [Recovered/Resolved]
  - Post procedural haemorrhage [Recovered/Resolved]
  - Postoperative thrombosis [Recovered/Resolved]
  - Off label use [Unknown]

NARRATIVE: CASE EVENT DATE: 20210301
